FAERS Safety Report 10366334 (Version 1)
Quarter: 2014Q3

REPORT INFORMATION
  Report Type: Report from Study
  Country: US (occurrence: US)
  Receive Date: 20140806
  Receipt Date: 20140806
  Transmission Date: 20150326
  Serious: Yes (Hospitalization)
  Sender: FDA-Public Use
  Company Number: US-PFIZER INC-2014214970

PATIENT
  Age: 16 Year
  Sex: Female

DRUGS (3)
  1. AMITRIPTYLINE [Suspect]
     Active Substance: AMITRIPTYLINE
     Indication: SUICIDAL IDEATION
     Dosage: UNK
     Route: 048
  2. BENZTROPEINE [Suspect]
     Active Substance: TROPINE BENZYLATE
     Indication: SUICIDAL IDEATION
     Dosage: UNK
     Route: 048
  3. IBUPROFEN. [Suspect]
     Active Substance: IBUPROFEN
     Indication: SUICIDAL IDEATION
     Dosage: UNK
     Route: 048

REACTIONS (3)
  - Suicide attempt [Unknown]
  - Intentional overdose [Unknown]
  - Mental status changes [Unknown]
